FAERS Safety Report 4438717-5 (Version None)
Quarter: 2004Q3

REPORT INFORMATION
  Report Type: 
  Country: None (occurrence: None)
  Receive Date: 20040830
  Receipt Date: 20040817
  Transmission Date: 20050211
  Serious: Yes (Other)
  Sender: FDA-Public Use
  Company Number: 2004057166

PATIENT
  Sex: Male
  Weight: 61.2356 kg

DRUGS (14)
  1. DILANTIN KAPSEAL [Suspect]
     Indication: CONVULSION
     Dosage: 500 MG (100 MG), ORAL
     Route: 048
     Dates: start: 20040101
  2. PHENYTOIN [Suspect]
     Indication: CONVULSION
     Dosage: 500 MG (100 MG), ORAL
     Route: 048
     Dates: start: 20000401
  3. PHENYTOIN [Suspect]
     Indication: CONVULSION
     Dosage: 400 MG (100 MG)
     Dates: end: 20040101
  4. SERETIDE MITE (FLUTICASONE PROPIONATE, SALMETEROL XINAFOATE) [Suspect]
     Indication: ILL-DEFINED DISORDER
     Dates: start: 20040101, end: 20040801
  5. FLUTICASONE PROPIONATE [Suspect]
     Indication: ILL-DEFINED DISORDER
     Dates: start: 20040101, end: 20040801
  6. MINOXIDIL [Concomitant]
  7. TRAZODONE HCL [Concomitant]
  8. VITAMINS (VITAMINS) [Concomitant]
  9. POTASSIUM (POTASSIUM) [Concomitant]
  10. DIURETICS (DIURETICS) [Concomitant]
  11. B-KOMPLEX ^LECIVA^ (CALCIUM PANTOTHENATE, NICOTINAMIDE, PYRIDOXINE HYD [Concomitant]
  12. FOLIC ACID [Concomitant]
  13. HYDROXYZINE EMBONATE (HYDROXZINE EMBONATE) [Concomitant]
  14. PRAVASTATIN SODIUM [Concomitant]

REACTIONS (8)
  - ALOPECIA UNIVERSALIS [None]
  - CONVULSION [None]
  - ERYTHEMA [None]
  - GENITAL PRURITUS MALE [None]
  - PENILE SWELLING [None]
  - PRURITUS [None]
  - SWELLING FACE [None]
  - TREATMENT NONCOMPLIANCE [None]
